FAERS Safety Report 4629427-X (Version None)
Quarter: 2005Q2

REPORT INFORMATION
  Report Type: 
  Country: None (occurrence: None)
  Receive Date: 20050405
  Receipt Date: 20050322
  Transmission Date: 20051028
  Serious: Yes (Other)
  Sender: FDA-Public Use
  Company Number: 2005S1000057

PATIENT
  Sex: Female

DRUGS (1)
  1. ACITRETIN (ACITRETIN) [Suspect]
     Dosage: PO
     Route: 048
     Dates: start: 20040615

REACTIONS (1)
  - NO ADVERSE EFFECT [None]
